FAERS Safety Report 6509388-9 (Version None)
Quarter: 2009Q4

REPORT INFORMATION
  Report Type: 
  Country: None (occurrence: None)
  Receive Date: 20091222
  Receipt Date: 20091216
  Transmission Date: 20100525
  Serious: Yes (Other)
  Sender: FDA-Public Use
  Company Number: US-RB-027077-09

PATIENT
  Sex: Female

DRUGS (1)
  1. MUCINEX DM [Suspect]
     Route: 048
     Dates: start: 20091201

REACTIONS (5)
  - COUGH [None]
  - DRUG INEFFECTIVE [None]
  - INSOMNIA [None]
  - PALPITATIONS [None]
  - PSYCHOMOTOR HYPERACTIVITY [None]
